FAERS Safety Report 25769001 (Version 1)
Quarter: 2025Q3

REPORT INFORMATION
  Report Type: Report from Study
  Country: US (occurrence: US)
  Receive Date: 20250905
  Receipt Date: 20250905
  Transmission Date: 20251020
  Serious: Yes (Hospitalization, Other)
  Sender: ALEXION PHARMACEUTICALS
  Company Number: US-AstraZeneca-CH-00917789A

PATIENT
  Age: 65 Year
  Sex: Female
  Weight: 114 kg

DRUGS (5)
  1. TEZSPIRE [Suspect]
     Active Substance: TEZEPELUMAB-EKKO
     Indication: Asthma
  2. TEZSPIRE [Suspect]
     Active Substance: TEZEPELUMAB-EKKO
  3. PULMICORT TURBUHALER [Suspect]
     Active Substance: BUDESONIDE
     Route: 065
  4. BREZTRI [Suspect]
     Active Substance: BUDESONIDE\FORMOTEROL\GLYCOPYRROLATE
     Route: 065
  5. VANCOMYCIN [Concomitant]
     Active Substance: VANCOMYCIN
     Route: 065

REACTIONS (62)
  - Asthma [Recovered/Resolved]
  - Cough [Recovering/Resolving]
  - Productive cough [Recovered/Resolved]
  - Cardiac failure [Unknown]
  - Pneumonia [Recovered/Resolved]
  - Dyspnoea [Recovering/Resolving]
  - Nasal congestion [Recovered/Resolved]
  - Hypertension [Recovered/Resolved]
  - Wheezing [Recovering/Resolving]
  - Abdominal pain [Recovering/Resolving]
  - Chronic obstructive pulmonary disease [Unknown]
  - Hypoxia [Unknown]
  - Bronchiectasis [Unknown]
  - Obstructive sleep apnoea syndrome [Unknown]
  - Gastrooesophageal reflux disease [Unknown]
  - Transient ischaemic attack [Unknown]
  - Dyspnoea [Unknown]
  - Cardiac failure congestive [Unknown]
  - Chronic obstructive pulmonary disease [Unknown]
  - Condition aggravated [Unknown]
  - Cardiomegaly [Unknown]
  - Hypotension [Unknown]
  - Oedema [Unknown]
  - Abdominal distension [Unknown]
  - Haemoglobin abnormal [Unknown]
  - Blood glucose abnormal [Unknown]
  - Respiratory pathogen panel [Unknown]
  - Illness [Unknown]
  - Lactic acidosis [Unknown]
  - Cyst [Unknown]
  - Sinusitis [Unknown]
  - Insurance issue [Unknown]
  - Hyperlipidaemia [Unknown]
  - Ankle fracture [Unknown]
  - Electrolyte imbalance [Unknown]
  - Intervertebral disc degeneration [Unknown]
  - Back pain [Unknown]
  - Dizziness [Unknown]
  - Headache [Unknown]
  - Diarrhoea [Unknown]
  - COVID-19 [Unknown]
  - Immunosuppression [Unknown]
  - Joint injury [Unknown]
  - Hypomagnesaemia [Unknown]
  - Chronic kidney disease [Unknown]
  - Major depression [Unknown]
  - Hypokalaemia [Unknown]
  - Acute kidney injury [Unknown]
  - Alkalosis [Unknown]
  - Anxiety [Unknown]
  - Adrenocortical insufficiency acute [Unknown]
  - Type IIa hyperlipidaemia [Unknown]
  - Leukocytosis [Unknown]
  - Calcification metastatic [Unknown]
  - Systemic inflammatory response syndrome [Unknown]
  - Costochondritis [Unknown]
  - Tubulointerstitial nephritis [Unknown]
  - Type 2 diabetes mellitus [Unknown]
  - Anaemia [Unknown]
  - Irritable bowel syndrome [Unknown]
  - Glaucoma [Unknown]
  - White blood cell count abnormal [Unknown]

NARRATIVE: CASE EVENT DATE: 20250629
